FAERS Safety Report 23773159 (Version 1)
Quarter: 2024Q2

REPORT INFORMATION
  Report Type: Spontaneous
  Country: CA (occurrence: CA)
  Receive Date: 20240423
  Receipt Date: 20240423
  Transmission Date: 20240716
  Serious: Yes (Death)
  Sender: FDA-Public Use
  Company Number: CA-TEVA-VS-3185951

PATIENT
  Age: 62 Year
  Sex: Female

DRUGS (2)
  1. METHOTREXATE [Suspect]
     Active Substance: METHOTREXATE
     Indication: Psoriatic arthropathy
     Route: 065
  2. PANTOPRAZOLE SODIUM [Suspect]
     Active Substance: PANTOPRAZOLE SODIUM
     Indication: Antacid therapy
     Route: 065

REACTIONS (6)
  - Bone marrow failure [Fatal]
  - Acute kidney injury [Fatal]
  - Altered state of consciousness [Fatal]
  - Asthenia [Fatal]
  - Bacterial colitis [Fatal]
  - Accidental poisoning [Fatal]
